FAERS Safety Report 9817594 (Version 1)
Quarter: 2013Q4

REPORT INFORMATION
  Report Type: Spontaneous
  Country: US (occurrence: None)
  Receive Date: 20131223
  Receipt Date: 20131223
  Transmission Date: 20140711
  Serious: No
  Sender: FDA-Public Use
  Company Number: 217931

PATIENT
  Age: 64 Year
  Sex: Male

DRUGS (1)
  1. PICATO GEL [Suspect]
     Indication: ACTINIC KERATOSIS
     Dosage: ON ARMS
     Dates: start: 20120602, end: 20120603

REACTIONS (3)
  - Blister [None]
  - Application site scab [None]
  - Incorrect dose administered [None]
